FAERS Safety Report 25684993 (Version 1)
Quarter: 2025Q3

REPORT INFORMATION
  Report Type: Spontaneous
  Country: US (occurrence: US)
  Receive Date: 20250815
  Receipt Date: 20250815
  Transmission Date: 20251021
  Serious: No
  Sender: PUMA
  Company Number: US-PUMA BIOTECHNOLOGY, LTD.-2024-PUM-US001478

PATIENT

DRUGS (2)
  1. NERATINIB [Suspect]
     Active Substance: NERATINIB
     Indication: Breast cancer
     Route: 048
  2. NERATINIB [Suspect]
     Active Substance: NERATINIB
     Route: 048

REACTIONS (3)
  - Rash [Unknown]
  - Diarrhoea [Unknown]
  - Fatigue [Unknown]
